FAERS Safety Report 24191431 (Version 1)
Quarter: 2024Q3

REPORT INFORMATION
  Report Type: Spontaneous
  Country: US (occurrence: US)
  Receive Date: 20240808
  Receipt Date: 20240808
  Transmission Date: 20241016
  Serious: No
  Sender: MERCK
  Company Number: US-009507513-2407USA009228

PATIENT
  Sex: Male

DRUGS (9)
  1. KEYTRUDA [Suspect]
     Active Substance: PEMBROLIZUMAB
     Indication: Renal cancer
     Dosage: UNK
  2. LENVATINIB MESYLATE [Suspect]
     Active Substance: LENVATINIB MESYLATE
     Indication: Renal cancer
     Dosage: 10 MILLIGRAM, QD
     Route: 048
  3. CARDIZEN [Concomitant]
  4. VITAMIN B1 [VITAMIN B1 NOS] [Concomitant]
  5. COENZIMA Q-10 [Concomitant]
  6. FISH OIL [Concomitant]
     Active Substance: FISH OIL
  7. PROTEIN [Concomitant]
     Active Substance: PROTEIN
  8. VITAMIN B COMPLEX [Concomitant]
     Active Substance: CYANOCOBALAMIN\DEXPANTHENOL\NIACINAMIDE\PYRIDOXINE HYDROCHLORIDE\RIBOFLAVIN 5^-PHOSPHATE SODIUM\THIA
  9. SUTENT [Concomitant]
     Active Substance: SUNITINIB MALATE

REACTIONS (2)
  - Tremor [Unknown]
  - Product use issue [Unknown]
